FAERS Safety Report 21657209 (Version 6)
Quarter: 2023Q1

REPORT INFORMATION
  Report Type: Report from Study
  Country: US (occurrence: US)
  Receive Date: 20221129
  Receipt Date: 20230112
  Transmission Date: 20230417
  Serious: No
  Sender: FDA-Public Use
  Company Number: US-002147023-NVSC2022US276928

PATIENT
  Age: 45 Year
  Sex: Female

DRUGS (2)
  1. COSENTYX [Suspect]
     Active Substance: SECUKINUMAB
     Indication: Psoriasis
     Dosage: 300 MG (RECEIVED ONLY ONE DOSE)
     Route: 058
     Dates: start: 20221114, end: 20221114
  2. COSENTYX [Suspect]
     Active Substance: SECUKINUMAB
     Indication: Psoriasis

REACTIONS (7)
  - Hyperhidrosis [Unknown]
  - Chills [Recovered/Resolved]
  - Rash [Recovered/Resolved]
  - Swelling of eyelid [Recovered/Resolved]
  - Hypersensitivity [Unknown]
  - Headache [Unknown]
  - Urticaria [Unknown]

NARRATIVE: CASE EVENT DATE: 20221114
